FAERS Safety Report 7949279-X (Version None)
Quarter: 2011Q4

REPORT INFORMATION
  Report Type: 
  Country: None (occurrence: None)
  Receive Date: 20111123
  Receipt Date: 20111116
  Transmission Date: 20120403
  Serious: Yes (Other)
  Sender: FDA-Public Use
  Company Number: ACO_28128_2011

PATIENT
  Sex: Male

DRUGS (5)
  1. FISH OIL (FISH OIL) [Concomitant]
  2. BETASERON [Concomitant]
  3. TAMSULOSIN HCL [Concomitant]
  4. ERGOCALCIFEROL [Concomitant]
  5. AMPYRA [Suspect]
     Indication: MULTIPLE SCLEROSIS
     Dosage: 10 MG, Q 12 HRS, ORAL
     Route: 048

REACTIONS (1)
  - CONVULSION [None]
